FAERS Safety Report 20802500 (Version 1)
Quarter: 2022Q2

REPORT INFORMATION
  Report Type: Spontaneous
  Country: US (occurrence: None)
  Receive Date: 20220508
  Receipt Date: 20220508
  Transmission Date: 20220721
  Serious: Yes (Hospitalization, Other)
  Sender: FDA-Public Use
  Company Number: None

PATIENT
  Age: 60 Year
  Sex: Female
  Weight: 78.75 kg

DRUGS (10)
  1. AZITHROMYCIN MONOHYDRATE [Suspect]
     Active Substance: AZITHROMYCIN MONOHYDRATE
     Indication: Oropharyngeal pain
     Dosage: FREQUENCY : DAILY;?
     Route: 048
     Dates: start: 20220506, end: 20220507
  2. AZITHROMYCIN MONOHYDRATE [Suspect]
     Active Substance: AZITHROMYCIN MONOHYDRATE
     Indication: Ear pain
  3. AZITHROMYCIN MONOHYDRATE [Suspect]
     Active Substance: AZITHROMYCIN MONOHYDRATE
     Indication: Ear pain
  4. AZITHROMYCIN MONOHYDRATE [Suspect]
     Active Substance: AZITHROMYCIN MONOHYDRATE
     Indication: Influenza
  5. AZITHROMYCIN MONOHYDRATE [Suspect]
     Active Substance: AZITHROMYCIN MONOHYDRATE
     Indication: COVID-19
  6. Vulmerity [Concomitant]
  7. ROSUVASTATIN [Concomitant]
     Active Substance: ROSUVASTATIN
  8. VITAMIN B12 [Concomitant]
     Active Substance: CYANOCOBALAMIN
  9. VITAMIN D3 [Concomitant]
     Active Substance: CHOLECALCIFEROL
  10. UBIQUINOL CoQ10 [Concomitant]

REACTIONS (9)
  - Feeling abnormal [None]
  - Dizziness [None]
  - Presyncope [None]
  - Nausea [None]
  - Abdominal pain upper [None]
  - Vomiting [None]
  - Diarrhoea [None]
  - Haematochezia [None]
  - Rectal haemorrhage [None]

NARRATIVE: CASE EVENT DATE: 20220506
